FAERS Safety Report 4301131-7 (Version None)
Quarter: 2004Q1

REPORT INFORMATION
  Report Type: 
  Country: None (occurrence: None)
  Receive Date: 20040219
  Receipt Date: 20040213
  Transmission Date: 20041129
  Serious: Yes (Hospitalization)
  Sender: FDA-Public Use
  Company Number: RB-513-2004

PATIENT
  Age: 5 Day
  Sex: Male

DRUGS (3)
  1. BUPRENORPHINE HYDROCHLORIDE [Suspect]
     Indication: DRUG ABUSER
     Dosage: SEE IMAGE
     Dates: end: 19960223
  2. BUPRENORPHINE HYDROCHLORIDE [Suspect]
     Indication: DRUG ABUSER
     Dosage: SEE IMAGE
     Dates: end: 19961123
  3. BUPRENORPHINE HYDROCHLORIDE [Suspect]
     Indication: DRUG ABUSER
     Dosage: SEE IMAGE
     Dates: start: 19960301

REACTIONS (2)
  - DRUG WITHDRAWAL SYNDROME NEONATAL [None]
  - MATERNAL DRUGS AFFECTING FOETUS [None]
